FAERS Safety Report 13178845 (Version 3)
Quarter: 2017Q3

REPORT INFORMATION
  Report Type: Report from Study
  Country: US (occurrence: US)
  Receive Date: 20170202
  Receipt Date: 20170810
  Transmission Date: 20171127
  Serious: Yes (Other)
  Sender: FDA-Public Use
  Company Number: US-ALEXION PHARMACEUTICALS INC.-A201700836

PATIENT
  Age: 42 Year
  Sex: Female
  Weight: 113.1 kg

DRUGS (16)
  1. NEORAL [Concomitant]
     Active Substance: CYCLOSPORINE
     Indication: PRODUCT USED FOR UNKNOWN INDICATION
     Dosage: 4 CAPSULED OF 50 (200) MG, BID
     Route: 048
     Dates: start: 20160708
  2. HYDRODIURIL [Concomitant]
     Active Substance: HYDROCHLOROTHIAZIDE
     Indication: PRODUCT USED FOR UNKNOWN INDICATION
     Dosage: 25 MG, QD
     Route: 048
  3. ZOFRAN [Concomitant]
     Active Substance: ONDANSETRON HYDROCHLORIDE
     Indication: VOMITING
  4. DAPSONE. [Concomitant]
     Active Substance: DAPSONE
     Indication: PROPHYLAXIS
     Dosage: 100 MG, QD
     Route: 048
  5. PEPCID [Concomitant]
     Active Substance: FAMOTIDINE
     Indication: PRODUCT USED FOR UNKNOWN INDICATION
     Dosage: 20 MG, Q12H
     Route: 048
  6. SOLIRIS [Suspect]
     Active Substance: ECULIZUMAB
     Indication: PAROXYSMAL NOCTURNAL HAEMOGLOBINURIA
     Dosage: 1200 MG, Q2W
     Route: 042
     Dates: start: 20160802, end: 20170718
  7. PRILOSEC [Concomitant]
     Active Substance: OMEPRAZOLE MAGNESIUM
     Indication: PRODUCT USED FOR UNKNOWN INDICATION
     Dosage: 20 MG, QD
     Route: 048
  8. ZOFRAN [Concomitant]
     Active Substance: ONDANSETRON HYDROCHLORIDE
     Indication: NAUSEA
     Dosage: 4 MG, Q6H AS NEEDED
     Route: 048
  9. FOLIC ACID. [Concomitant]
     Active Substance: FOLIC ACID
     Indication: PRODUCT USED FOR UNKNOWN INDICATION
     Dosage: 5 MG, QD
     Route: 048
  10. K-DUR [Concomitant]
     Active Substance: POTASSIUM CHLORIDE
     Indication: PRODUCT USED FOR UNKNOWN INDICATION
     Dosage: 20 MEQ (2 TAB OF 10 MEQ), BID
     Route: 048
  11. PREDNISONE. [Concomitant]
     Active Substance: PREDNISONE
     Indication: PRODUCT USED FOR UNKNOWN INDICATION
     Route: 065
  12. DANAZOL. [Suspect]
     Active Substance: DANAZOL
     Indication: PRODUCT USED FOR UNKNOWN INDICATION
     Dosage: UNK
     Route: 065
     Dates: start: 20170420
  13. ORTHO CYCLEN [Concomitant]
     Active Substance: ETHINYL ESTRADIOL\NORGESTIMATE
     Indication: PRODUCT USED FOR UNKNOWN INDICATION
     Dosage: 0.25-0.35 MG-MCG (1 TAB), QD
     Route: 048
  14. ZOVIRAX [Concomitant]
     Active Substance: ACYCLOVIR
     Indication: PRODUCT USED FOR UNKNOWN INDICATION
     Dosage: 400 MG, BID
     Route: 048
  15. NEORAL [Concomitant]
     Active Substance: CYCLOSPORINE
     Dosage: 150 MG, BID (3 TAB)
     Route: 048
     Dates: start: 20160708
  16. ATGAM [Concomitant]
     Active Substance: EQUINE THYMOCYTE IMMUNE GLOBULIN
     Indication: PRODUCT USED FOR UNKNOWN INDICATION
     Dosage: UNK
     Route: 065
     Dates: start: 20160930

REACTIONS (27)
  - Alanine aminotransferase increased [Unknown]
  - Incorrect dose administered [Unknown]
  - Marrow hyperplasia [Unknown]
  - Blood pressure abnormal [Unknown]
  - Urticaria [Unknown]
  - Dizziness [Recovered/Resolved]
  - Headache [Unknown]
  - Reticulocyte percentage increased [Unknown]
  - Visual impairment [Unknown]
  - Megakaryocytes decreased [Unknown]
  - Blood lactate dehydrogenase increased [Unknown]
  - Haemoglobin decreased [Recovering/Resolving]
  - Memory impairment [Unknown]
  - Electrolyte imbalance [Unknown]
  - Bone marrow failure [Unknown]
  - Reticulocyte count increased [Unknown]
  - Platelet count decreased [Recovering/Resolving]
  - Anti-thyroid antibody [Unknown]
  - Menstrual disorder [Recovering/Resolving]
  - Bone marrow reticulin fibrosis [Unknown]
  - Fatigue [Unknown]
  - Secondary hypertension [Recovering/Resolving]
  - Bilirubin conjugated increased [Unknown]
  - Haematocrit abnormal [Unknown]
  - Blood bilirubin increased [Unknown]
  - Gastrooesophageal reflux disease [Recovered/Resolved]
  - White blood cell count decreased [Unknown]

NARRATIVE: CASE EVENT DATE: 20160802
